FAERS Safety Report 11575782 (Version 1)
Quarter: 2015Q3

REPORT INFORMATION
  Report Type: Spontaneous
  Country: FR (occurrence: FR)
  Receive Date: 20150930
  Receipt Date: 20150930
  Transmission Date: 20151125
  Serious: Yes (Other)
  Sender: FDA-Public Use
  Company Number: FR-SA-2015SA146506

PATIENT
  Age: 82 Year
  Sex: Female

DRUGS (7)
  1. PLAVIX [Concomitant]
     Active Substance: CLOPIDOGREL BISULFATE
     Route: 065
  2. TORISEL [Suspect]
     Active Substance: TEMSIROLIMUS
     Indication: RENAL CANCER
     Route: 042
     Dates: start: 20150817, end: 20150817
  3. APROVEL [Suspect]
     Active Substance: IRBESARTAN
     Route: 048
  4. KETODERM [Concomitant]
     Active Substance: KETOCONAZOLE
     Dosage: START DATE: FROM LONG TERM (OLD), 2%
     Route: 061
  5. DOLIPRANE [Concomitant]
     Active Substance: ACETAMINOPHEN
     Route: 065
  6. AERIUS [Concomitant]
     Active Substance: DESLORATADINE
     Route: 065
  7. LEVOTHYROX [Concomitant]
     Active Substance: LEVOTHYROXINE
     Route: 065

REACTIONS (2)
  - Face oedema [Not Recovered/Not Resolved]
  - Aphthous ulcer [Recovering/Resolving]

NARRATIVE: CASE EVENT DATE: 20150819
